FAERS Safety Report 4951148-4 (Version None)
Quarter: 2006Q1

REPORT INFORMATION
  Report Type: 
  Country: None (occurrence: None)
  Receive Date: 20060322
  Receipt Date: 20060301
  Transmission Date: 20060701
  Serious: Yes (Other)
  Sender: FDA-Public Use
  Company Number: US-MERCK-0603USA02316

PATIENT
  Age: 55 Year
  Sex: Male

DRUGS (2)
  1. PROPECIA [Suspect]
     Indication: ALOPECIA
     Route: 048
     Dates: start: 19910101
  2. ROGAINE [Concomitant]
     Indication: HYPOTRICHOSIS
     Route: 065
     Dates: start: 19830101

REACTIONS (5)
  - BASAL CELL CARCINOMA [None]
  - DRUG INEFFECTIVE [None]
  - MASS [None]
  - PHOTODERMATOSIS [None]
  - SKIN REACTION [None]
